FAERS Safety Report 11383301 (Version 1)
Quarter: 2015Q3

REPORT INFORMATION
  Report Type: Spontaneous
  Country: US (occurrence: US)
  Receive Date: 20150814
  Receipt Date: 20150814
  Transmission Date: 20151125
  Serious: Yes (Other)
  Sender: FDA-Public Use
  Company Number: US-BAYER-2015-400204

PATIENT
  Sex: Female

DRUGS (1)
  1. DR. SCHOLLS CORN/CALLUS REMOVER [Suspect]
     Active Substance: SALICYLIC ACID
     Indication: BLISTER

REACTIONS (10)
  - Skin induration [Unknown]
  - Foot deformity [Unknown]
  - Skin mass [Unknown]
  - Pain in extremity [Unknown]
  - Intentional product misuse [Unknown]
  - Limb discomfort [Unknown]
  - Peripheral swelling [Unknown]
  - Skin ulcer [Unknown]
  - Drug ineffective for unapproved indication [Unknown]
  - Skin disorder [Unknown]
